FAERS Safety Report 20618868 (Version 2)
Quarter: 2022Q2

REPORT INFORMATION
  Report Type: Report from Study
  Country: CA (occurrence: CA)
  Receive Date: 20220322
  Receipt Date: 20220621
  Transmission Date: 20220721
  Serious: Yes (Other)
  Sender: FDA-Public Use
  Company Number: CA-BoehringerIngelheim-2020-BI-051719

PATIENT
  Age: 71 Year
  Sex: Male

DRUGS (3)
  1. OFEV [Suspect]
     Active Substance: NINTEDANIB
     Indication: Idiopathic pulmonary fibrosis
     Route: 048
     Dates: start: 20200826
  2. OFEV [Suspect]
     Active Substance: NINTEDANIB
     Dosage: 100 MG PLUS 150 MG
     Route: 048
  3. OFEV [Suspect]
     Active Substance: NINTEDANIB
     Route: 038

REACTIONS (7)
  - Idiopathic pulmonary fibrosis [Unknown]
  - Blood bilirubin increased [Recovered/Resolved]
  - Herpes zoster [Not Recovered/Not Resolved]
  - Gastrointestinal sounds abnormal [Not Recovered/Not Resolved]
  - Diarrhoea [Not Recovered/Not Resolved]
  - Rash [Not Recovered/Not Resolved]
  - Dyspnoea [Recovering/Resolving]

NARRATIVE: CASE EVENT DATE: 20210309
